FAERS Safety Report 18997460 (Version 1)
Quarter: 2021Q1

REPORT INFORMATION
  Report Type: Spontaneous
  Country: IN (occurrence: IN)
  Receive Date: 20210311
  Receipt Date: 20210311
  Transmission Date: 20210420
  Serious: Yes (Other)
  Sender: FDA-Public Use
  Company Number: IN-FRESENIUS KABI-FK202102249

PATIENT
  Age: 48 Year
  Sex: Female

DRUGS (1)
  1. CISPLATIN (MANUFACTURER UNKNOWN) [Suspect]
     Active Substance: CISPLATIN
     Indication: OVARIAN CANCER STAGE III
     Dosage: CISPLATIN WAS DILUTED IN 2 LITRES OF SODIUM CHLORIDE [NORMAL SALINE] PERFUSATE AT 41?43 DEGREE C FOR
     Route: 033

REACTIONS (1)
  - Enterocutaneous fistula [Recovered/Resolved]
